FAERS Safety Report 5317000-X (Version None)
Quarter: 2007Q2

REPORT INFORMATION
  Report Type: 
  Country: None (occurrence: None)
  Receive Date: 20070504
  Receipt Date: 20070420
  Transmission Date: 20071010
  Serious: Yes (Hospitalization)
  Sender: FDA-Public Use
  Company Number: JP-ROCHE-486665

PATIENT
  Age: 27 Month
  Sex: Female
  Weight: 9 kg

DRUGS (11)
  1. TAMIFLU [Suspect]
     Dosage: FORM REPORTED AS DRY SYRUP.
     Route: 048
     Dates: start: 20070306, end: 20070307
  2. MEROPEN [Concomitant]
     Dosage: ROUTE REPORTED AS INTRAVENOUS DRIP.
     Route: 042
     Dates: start: 20070306, end: 20070311
  3. HOKUNALIN [Concomitant]
     Dosage: FORM REPORTED AS TAPE.
     Route: 061
     Dates: start: 20070306
  4. TRANSAMIN [Concomitant]
     Route: 048
     Dates: start: 20070306, end: 20070314
  5. MUCODYNE [Concomitant]
     Route: 048
     Dates: start: 20070306
  6. ALIMEZINE [Concomitant]
     Route: 048
     Dates: start: 20070306, end: 20070314
  7. ASVERIN [Concomitant]
     Route: 048
     Dates: start: 20070306, end: 20070314
  8. SENEGA [Concomitant]
     Route: 048
     Dates: start: 20070306, end: 20070314
  9. ENTERONON [Concomitant]
     Route: 048
     Dates: start: 20070306, end: 20070314
  10. SOLDEM [Concomitant]
     Dosage: FORM: INTRAVENOUS DRIP.
     Route: 042
     Dates: start: 20070306, end: 20070312
  11. 1 CONCOMITANT DRUG [Concomitant]
     Dosage: FORM: INHALANT. ROUTE: RESPIRATORY (INHALATION)
     Route: 055
     Dates: start: 20070306, end: 20070314

REACTIONS (2)
  - ABNORMAL BEHAVIOUR [None]
  - AGITATION [None]
